FAERS Safety Report 13777215 (Version 1)
Quarter: 2017Q3

REPORT INFORMATION
  Report Type: Report from Study
  Country: US (occurrence: US)
  Receive Date: 20170720
  Receipt Date: 20170720
  Transmission Date: 20171127
  Serious: No
  Sender: FDA-Public Use
  Company Number: PHEH2017US021896

PATIENT
  Sex: Male

DRUGS (1)
  1. COSENTYX [Suspect]
     Active Substance: SECUKINUMAB
     Indication: PSORIASIS
     Dosage: 300 MG, QW4
     Route: 058
     Dates: start: 201704, end: 201706

REACTIONS (6)
  - Chest discomfort [Unknown]
  - Psoriasis [Unknown]
  - Dyspnoea [Unknown]
  - Bone pain [Unknown]
  - Heart rate increased [Unknown]
  - Arthralgia [Unknown]
